FAERS Safety Report 24339247 (Version 2)
Quarter: 2024Q3

REPORT INFORMATION
  Report Type: Spontaneous
  Country: BR (occurrence: BR)
  Receive Date: 20240919
  Receipt Date: 20240925
  Transmission Date: 20241017
  Serious: Yes (Other)
  Sender: PFIZER
  Company Number: BR-PFIZER INC-202400258245

PATIENT
  Age: 85 Year
  Sex: Male
  Weight: 53.7 kg

DRUGS (14)
  1. RUXIENCE [Suspect]
     Active Substance: RITUXIMAB-PVVR
     Indication: B-cell lymphoma
     Dosage: 600 MG, CYCLIC
     Route: 042
     Dates: start: 20240912, end: 20240912
  2. RUXIENCE [Suspect]
     Active Substance: RITUXIMAB-PVVR
     Dosage: 600 MG, CYCLIC
     Route: 042
     Dates: start: 20240912, end: 20240912
  3. RUXIENCE [Suspect]
     Active Substance: RITUXIMAB-PVVR
     Dosage: 600 MG, CYCLIC
     Route: 042
     Dates: start: 20240912, end: 20240912
  4. RUXIENCE [Suspect]
     Active Substance: RITUXIMAB-PVVR
     Dosage: 600 MG, CYCLIC
     Route: 042
     Dates: start: 20240912, end: 20240912
  5. RUXIENCE [Suspect]
     Active Substance: RITUXIMAB-PVVR
     Dosage: 600 MG, CYCLIC
     Route: 042
     Dates: start: 20240919, end: 20240919
  6. ACETAMINOPHEN [Concomitant]
     Active Substance: ACETAMINOPHEN
     Indication: Chemotherapy side effect prophylaxis
     Dosage: 750 MG, CYCLIC
     Route: 048
     Dates: start: 20240912, end: 20240912
  7. ACETAMINOPHEN [Concomitant]
     Active Substance: ACETAMINOPHEN
     Dosage: 750 MG, CYCLIC
     Route: 048
     Dates: start: 20240919, end: 20240919
  8. DIPHENHYDRAMINE [Concomitant]
     Active Substance: DIPHENHYDRAMINE
     Indication: Chemotherapy side effect prophylaxis
     Dosage: 50 MG, CYCLIC, 20 MINUTES
     Route: 042
     Dates: start: 20240912, end: 20240912
  9. DIPHENHYDRAMINE [Concomitant]
     Active Substance: DIPHENHYDRAMINE
     Dosage: 50 UNK
     Route: 042
     Dates: start: 20240919, end: 20240919
  10. OMEPRAZOLE [Concomitant]
     Active Substance: OMEPRAZOLE
     Dosage: 20 MG, 1X/DAY
     Route: 048
  11. ACYCLOVIR [Concomitant]
     Active Substance: ACYCLOVIR
     Dosage: 400 MG, 12/12 HOURS
     Route: 048
  12. SULFAMETHOXAZOLE AND TRIMETHOPRIM [Concomitant]
     Active Substance: SULFAMETHOXAZOLE\TRIMETHOPRIM
     Route: 048
  13. ONDANSETRON [Concomitant]
     Active Substance: ONDANSETRON
     Dosage: 8 MG, 8/8 HOURS
     Route: 048
  14. DIPYRONE [Concomitant]
     Active Substance: DIPYRONE
     Dosage: 500 MG, 6/6 HOURS
     Route: 048

REACTIONS (4)
  - Tremor [Recovered/Resolved]
  - Chills [Recovered/Resolved]
  - Back pain [Recovered/Resolved]
  - Blood pressure increased [Recovered/Resolved]

NARRATIVE: CASE EVENT DATE: 20240912
